FAERS Safety Report 23270955 (Version 1)
Quarter: 2023Q4

REPORT INFORMATION
  Report Type: Report from Study
  Country: KR (occurrence: KR)
  Receive Date: 20231207
  Receipt Date: 20231207
  Transmission Date: 20240110
  Serious: Yes (Death)
  Sender: FDA-Public Use
  Company Number: KR-BAYER-2023A171336

PATIENT
  Sex: Male

DRUGS (1)
  1. STIVARGA [Suspect]
     Active Substance: REGORAFENIB
     Dosage: UNK
     Dates: start: 20180313

REACTIONS (2)
  - Death [Fatal]
  - Adverse drug reaction [Fatal]

NARRATIVE: CASE EVENT DATE: 20190928
